FAERS Safety Report 7458908-9 (Version None)
Quarter: 2011Q2

REPORT INFORMATION
  Report Type: 
  Country: None (occurrence: None)
  Receive Date: 20110504
  Receipt Date: 20100721
  Transmission Date: 20111010
  Serious: No
  Sender: FDA-Public Use
  Company Number: US-SANOFI-AVENTIS-2010SA043559

PATIENT
  Age: 61 Year
  Sex: Male
  Weight: 129.27 kg

DRUGS (7)
  1. APIDRA [Suspect]
     Indication: TYPE 2 DIABETES MELLITUS
     Dosage: ON SLIDING SCALE.
     Route: 065
     Dates: start: 20090401
  2. LANTUS [Suspect]
     Dosage: DOSE:85 UNIT(S)
     Route: 058
     Dates: start: 20090101
  3. LANTUS [Suspect]
     Indication: TYPE 2 DIABETES MELLITUS
     Dates: start: 20090401
  4. METOPROLOL SUCCINATE [Concomitant]
     Indication: BLOOD PRESSURE
  5. METFORMIN [Concomitant]
     Dosage: 2 DAILY
  6. ENALAPRIL MALEATE AND HYDROCHLOROTHIAZIDE [Concomitant]
  7. LANTUS [Suspect]
     Indication: TYPE 2 DIABETES MELLITUS
     Dosage: DOSE:90 UNIT(S)
     Route: 058

REACTIONS (5)
  - BLOOD GLUCOSE INCREASED [None]
  - INSOMNIA [None]
  - PRODUCT QUALITY ISSUE [None]
  - TREMOR [None]
  - DIZZINESS [None]
